FAERS Safety Report 17580559 (Version 1)
Quarter: 2020Q1

REPORT INFORMATION
  Report Type: Spontaneous
  Country: US (occurrence: US)
  Receive Date: 20200321
  Receipt Date: 20200321
  Transmission Date: 20200409
  Serious: No
  Sender: FDA-Public Use
  Company Number: None

PATIENT
  Age: 51 Year
  Sex: Female

DRUGS (1)
  1. METHOTREXATE INJ 25MG/ML 2ML MDV [Suspect]
     Active Substance: METHOTREXATE SODIUM
     Dosage: ?          OTHER DOSE:0.6;OTHER FREQUENCY:OTHER;?
     Route: 058
     Dates: start: 202002

REACTIONS (2)
  - Wrong technique in product usage process [None]
  - Incorrect dose administered [None]

NARRATIVE: CASE EVENT DATE: 20200321
